FAERS Safety Report 6404748-9 (Version None)
Quarter: 2009Q4

REPORT INFORMATION
  Report Type: 
  Country: None (occurrence: None)
  Receive Date: 20091016
  Receipt Date: 20091008
  Transmission Date: 20100525
  Serious: No
  Sender: FDA-Public Use
  Company Number: US-B.I. PHARMACEUTICALS,INC./RIDGEFIELD-2009-BP-11825BP

PATIENT
  Sex: Male

DRUGS (5)
  1. FLOMAX [Suspect]
     Indication: MICTURITION URGENCY
     Dosage: 0.8 MG
     Route: 048
     Dates: start: 20050101
  2. LISINOPRIL [Concomitant]
     Indication: HYPERTENSION
  3. IMDUR [Concomitant]
     Indication: HYPERTENSION
  4. COREG [Concomitant]
     Indication: CARDIAC DISORDER
  5. ASPIRIN [Concomitant]
     Indication: CEREBROVASCULAR ACCIDENT PROPHYLAXIS

REACTIONS (1)
  - DRUG INEFFECTIVE [None]
